FAERS Safety Report 19430129 (Version 2)
Quarter: 2021Q3

REPORT INFORMATION
  Report Type: Spontaneous
  Country: FR (occurrence: FR)
  Receive Date: 20210617
  Receipt Date: 20210709
  Transmission Date: 20211014
  Serious: Yes (Death)
  Sender: FDA-Public Use
  Company Number: NVSC2021FR134137

PATIENT
  Age: 58 Year
  Sex: Female

DRUGS (11)
  1. PAROXETINE HYDROCHLORIDE. [Suspect]
     Active Substance: PAROXETINE HYDROCHLORIDE
     Indication: DEPRESSION
     Dosage: 10 MG,QD
     Route: 048
  2. CEFAZOLINE [Suspect]
     Active Substance: CEFAZOLIN SODIUM
     Indication: ANTIBIOTIC PROPHYLAXIS
     Dosage: 2 G (1 TOTAL)
     Route: 042
     Dates: start: 20210412, end: 20210412
  3. DEXAMETHASONE. [Suspect]
     Active Substance: DEXAMETHASONE
     Indication: ANAESTHESIA
     Dosage: UNK (INCONNUE)
     Route: 042
     Dates: start: 20210412, end: 20210412
  4. EXACYL [Suspect]
     Active Substance: TRANEXAMIC ACID
     Indication: HAEMORRHAGE
     Dosage: 1 DF,1
     Route: 065
     Dates: start: 20210412, end: 20210412
  5. BREXIN [Concomitant]
     Indication: PRODUCT USED FOR UNKNOWN INDICATION
     Dosage: 1 DF,QD (BREAKABLE TABLET)
     Route: 048
  6. SUFENTANIL [Suspect]
     Active Substance: SUFENTANIL
     Indication: ANAESTHESIA
     Dosage: UNK (INCONNUE)
     Route: 042
     Dates: start: 20210412, end: 20210412
  7. MIDAZOLAM. [Suspect]
     Active Substance: MIDAZOLAM
     Indication: ANAESTHESIA
     Dosage: UNK (INCONNUE)
     Route: 042
     Dates: start: 20210412
  8. INIPOMP [Concomitant]
     Active Substance: PANTOPRAZOLE SODIUM
     Indication: PRODUCT USED FOR UNKNOWN INDICATION
     Dosage: 1 DF,QD
     Route: 048
  9. NAROPEINE [Suspect]
     Active Substance: ROPIVACAINE HYDROCHLORIDE
     Indication: ANAESTHESIA
     Dosage: 20 MG,1 TOTAL
     Route: 037
     Dates: start: 20210412, end: 20210412
  10. DIPRIVAN [Suspect]
     Active Substance: PROPOFOL
     Indication: ANAESTHESIA
     Dosage: UNK (INCONNUE)
     Route: 042
     Dates: start: 20210412
  11. EVICEL [Suspect]
     Active Substance: FIBRINOGEN HUMAN\THROMBIN HUMAN
     Indication: ANAESTHESIA
     Dosage: 1 DF
     Route: 050
     Dates: start: 20210412, end: 20210412

REACTIONS (1)
  - Tonic clonic movements [Fatal]

NARRATIVE: CASE EVENT DATE: 20210412
